FAERS Safety Report 23140444 (Version 1)
Quarter: 2023Q4

REPORT INFORMATION
  Report Type: Spontaneous
  Country: IN (occurrence: IN)
  Receive Date: 20231102
  Receipt Date: 20231102
  Transmission Date: 20240109
  Serious: Yes (Death)
  Sender: FDA-Public Use
  Company Number: IN-BoehringerIngelheim-2023-BI-270715

PATIENT
  Age: 75 Year
  Sex: Male

DRUGS (1)
  1. NEVIRAPINE [Suspect]
     Active Substance: NEVIRAPINE
     Indication: HIV infection

REACTIONS (1)
  - Toxic epidermal necrolysis [Fatal]
